FAERS Safety Report 15634676 (Version 13)
Quarter: 2019Q4

REPORT INFORMATION
  Report Type: Report from Study
  Country: US (occurrence: US)
  Receive Date: 20181119
  Receipt Date: 20191014
  Transmission Date: 20200122
  Serious: Yes (Hospitalization)
  Sender: FDA-Public Use
  Company Number: US-ACTELION-A-US2018-177561

PATIENT
  Sex: Female
  Weight: 68.03 kg

DRUGS (2)
  1. ADEMPAS [Concomitant]
     Active Substance: RIOCIGUAT
     Dosage: 2.5 MG, TID
     Dates: start: 20190402
  2. OPSUMIT [Suspect]
     Active Substance: MACITENTAN
     Indication: PULMONARY ARTERIAL HYPERTENSION
     Dosage: 10 MG, QD
     Route: 048

REACTIONS (20)
  - Gastrooesophageal reflux disease [Unknown]
  - Oedema peripheral [Unknown]
  - Peripheral swelling [Unknown]
  - Pancreatitis [Unknown]
  - Malaise [Unknown]
  - Joint injury [Unknown]
  - General physical health deterioration [Unknown]
  - Constipation [Unknown]
  - Headache [Unknown]
  - Oxygen consumption increased [Unknown]
  - Gastroenteritis viral [Unknown]
  - Exocrine pancreatic function test [Unknown]
  - Fluid retention [Unknown]
  - Dizziness [Unknown]
  - Joint swelling [Unknown]
  - Hospitalisation [Unknown]
  - Dyspepsia [Unknown]
  - Product dose omission [Unknown]
  - General symptom [Unknown]
  - Nausea [Unknown]
